FAERS Safety Report 23257424 (Version 1)
Quarter: 2023Q4

REPORT INFORMATION
  Report Type: Spontaneous
  Country: FR (occurrence: FR)
  Receive Date: 20231204
  Receipt Date: 20231204
  Transmission Date: 20240109
  Serious: Yes (Hospitalization)
  Sender: FDA-Public Use
  Company Number: None

PATIENT
  Age: 68 Year
  Sex: Male

DRUGS (14)
  1. PACLITAXEL [Suspect]
     Active Substance: PACLITAXEL
     Indication: Testicular germ cell tumour
     Dosage: STRENGTH: 6 MG/ML
     Dates: end: 20231017
  2. CODEINE [Concomitant]
     Active Substance: CODEINE
     Indication: Pain
  3. PERINDOPRIL [Concomitant]
     Active Substance: PERINDOPRIL
     Indication: Hypertension
  4. Solupred [Concomitant]
     Indication: Premedication
  5. FENOFIBRATE [Concomitant]
     Active Substance: FENOFIBRATE
     Indication: Dyslipidaemia
  6. EMEND [Concomitant]
     Active Substance: APREPITANT
     Indication: Premedication
     Dosage: STRENGTH: 80 MG
  7. AMLODIPINE [Concomitant]
     Active Substance: AMLODIPINE BESYLATE
     Indication: Hypertension
  8. INDAPAMIDE [Concomitant]
     Active Substance: INDAPAMIDE
     Indication: Hypertension
  9. LIDOCAINE [Concomitant]
     Active Substance: LIDOCAINE
     Indication: Pain
     Dosage: STRENGTH: 5%
  10. INNOHEP [Concomitant]
     Active Substance: TINZAPARIN SODIUM
     Indication: Thrombosis prophylaxis
     Dosage: STRENGTH: 18,000 IU, ANTI-XA/0.9 ML, SOLUTION FOR INJECTION (S.C.) IN PRE-FILLED?SYRINGE
  11. OMEPRAZOLE [Concomitant]
     Active Substance: OMEPRAZOLE
     Indication: Prophylaxis against gastrointestinal ulcer
  12. FUROSEMIDE [Concomitant]
     Active Substance: FUROSEMIDE
     Indication: Adjuvant therapy
     Dosage: STRENGTH: 20 MG
  13. METFORMIN [Concomitant]
     Active Substance: METFORMIN HYDROCHLORIDE
     Indication: Diabetes mellitus
  14. ACETAMINOPHEN [Concomitant]
     Active Substance: ACETAMINOPHEN
     Indication: Pain

REACTIONS (3)
  - Infusion site extravasation [Recovering/Resolving]
  - Abdominal pain [Recovering/Resolving]
  - Testicular pain [Recovering/Resolving]

NARRATIVE: CASE EVENT DATE: 20231016
